FAERS Safety Report 16757955 (Version 3)
Quarter: 2019Q4

REPORT INFORMATION
  Report Type: Spontaneous
  Country: SK (occurrence: SK)
  Receive Date: 20190830
  Receipt Date: 20191014
  Transmission Date: 20200122
  Serious: Yes (Hospitalization, Other)
  Sender: FDA-Public Use
  Company Number: SK-SA-2019SA236987

PATIENT
  Age: 49 Year
  Sex: Female

DRUGS (15)
  1. PK-MERZ [AMANTADINE SULFATE] [Concomitant]
     Dosage: 1-1-0
  2. BRINTELLIX [Concomitant]
     Active Substance: VORTIOXETINE HYDROBROMIDE
  3. CAVINTON FORTE [Concomitant]
  4. EUTHYROX [Concomitant]
     Active Substance: LEVOTHYROXINE SODIUM
     Dosage: 75 UG, QOD
  5. FRAXIPARINE [Concomitant]
     Active Substance: NADROPARIN CALCIUM
  6. STILNOX [Concomitant]
     Active Substance: ZOLPIDEM TARTRATE
     Dosage: 0-0-0-1
  7. KARESOL [Concomitant]
     Dosage: 1-0-0
  8. NOVALGIN [CAFFEINE;PARACETAMOL;PROPYPHENAZONE] [Concomitant]
     Active Substance: ACETAMINOPHEN\CAFFEINE\PROPYPHENAZONE
  9. AUBAGIO [Suspect]
     Active Substance: TERIFLUNOMIDE
     Indication: MULTIPLE SCLEROSIS
     Dosage: UNK
     Dates: start: 20181002
  10. LYRICA [Concomitant]
     Active Substance: PREGABALIN
     Dosage: 1-0-2
  11. TRITTICO [Concomitant]
     Active Substance: TRAZODONE HYDROCHLORIDE
     Dosage: 10-0-2
  12. LUCETAM [Concomitant]
     Dosage: 2,5-0-0
  13. OZZION [Concomitant]
  14. EUTHYROX [Concomitant]
     Active Substance: LEVOTHYROXINE SODIUM
     Dosage: 100 UG, QOD
  15. AVONEX [Concomitant]
     Active Substance: INTERFERON BETA-1A
     Indication: MULTIPLE SCLEROSIS
     Dosage: UNK
     Dates: start: 1999

REACTIONS (8)
  - Memory impairment [Unknown]
  - Condition aggravated [Unknown]
  - Fatigue [Unknown]
  - Urinary incontinence [Not Recovered/Not Resolved]
  - Micturition urgency [Not Recovered/Not Resolved]
  - Multiple sclerosis relapse [Unknown]
  - Multiple sclerosis [Not Recovered/Not Resolved]
  - Limb discomfort [Unknown]

NARRATIVE: CASE EVENT DATE: 20190301
